FAERS Safety Report 12705346 (Version 2)
Quarter: 2016Q3

REPORT INFORMATION
  Report Type: Spontaneous
  Country: DE (occurrence: DE)
  Receive Date: 20160831
  Receipt Date: 20160903
  Transmission Date: 20161109
  Serious: Yes (Death, Life-Threatening, Hospitalization, Other)
  Sender: FDA-Public Use
  Company Number: DE-ASTRAZENECA-2016SE71045

PATIENT
  Age: 67 Year
  Sex: Male
  Weight: 75 kg

DRUGS (20)
  1. ASPIRIN. [Suspect]
     Active Substance: ASPIRIN
     Route: 065
  2. PROSTAGUTT FORTE [Concomitant]
     Active Substance: HERBALS
  3. BRILIQUE [Suspect]
     Active Substance: TICAGRELOR
     Indication: CARDIOVASCULAR DISORDER
     Route: 048
     Dates: end: 20160316
  4. EBRANTIL [Concomitant]
     Active Substance: URAPIDIL
     Dates: start: 201603
  5. MANNITOL. [Concomitant]
     Active Substance: MANNITOL
  6. CEFTRIAXONE. [Concomitant]
     Active Substance: CEFTRIAXONE
  7. PLAVIX [Concomitant]
     Active Substance: CLOPIDOGREL BISULFATE
  8. CLEXANE [Concomitant]
     Active Substance: ENOXAPARIN SODIUM
     Route: 058
  9. BRILIQUE [Suspect]
     Active Substance: TICAGRELOR
     Indication: ACUTE MYOCARDIAL INFARCTION
     Route: 048
     Dates: end: 20160316
  10. CANDESARTAN [Concomitant]
     Active Substance: CANDESARTAN
  11. SIMVASTATIN. [Concomitant]
     Active Substance: SIMVASTATIN
  12. CATECHOLAMINE [Concomitant]
  13. NEPRESOL [Concomitant]
     Active Substance: DIHYDRALAZINE SULFATE
  14. MINIRIN [Concomitant]
     Active Substance: DESMOPRESSIN ACETATE
  15. TORASEMID [Concomitant]
     Active Substance: TORSEMIDE
     Dates: start: 201603
  16. VANCOMYCIN [Concomitant]
     Active Substance: VANCOMYCIN
  17. BRILIQUE [Suspect]
     Active Substance: TICAGRELOR
     Indication: ACUTE MYOCARDIAL INFARCTION
     Route: 048
  18. BRILIQUE [Suspect]
     Active Substance: TICAGRELOR
     Indication: CARDIOVASCULAR DISORDER
     Route: 048
  19. MAGNESIUM VERLA [Concomitant]
     Active Substance: MAGNESIUM
     Dosage: TWICE DAILY
  20. LINEZOLIDE [Concomitant]
     Active Substance: LINEZOLID
     Route: 058

REACTIONS (16)
  - Respiratory failure [Unknown]
  - Subarachnoid haemorrhage [Fatal]
  - Fall [Unknown]
  - Cerebrospinal fluid circulation disorder [Fatal]
  - Diabetes insipidus [Unknown]
  - Traumatic intracranial haemorrhage [Fatal]
  - Brain oedema [Unknown]
  - Cerebral haemorrhage [Fatal]
  - Cor pulmonale [Unknown]
  - Hypopituitarism [Unknown]
  - Post procedural haematuria [Not Recovered/Not Resolved]
  - Brain abscess [Fatal]
  - Pneumonia [Unknown]
  - Type 2 diabetes mellitus [Unknown]
  - Intensive care unit acquired weakness [Unknown]
  - CNS ventriculitis [Fatal]

NARRATIVE: CASE EVENT DATE: 201603
